FAERS Safety Report 7224759-3 (Version None)
Quarter: 2011Q1

REPORT INFORMATION
  Report Type: 
  Country: None (occurrence: None)
  Receive Date: 20110106
  Receipt Date: 20110106
  Transmission Date: 20110831
  Serious: Yes (Other)
  Sender: FDA-Public Use
  Company Number: None

PATIENT
  Age: 2 Year
  Sex: Female
  Weight: 3.1752 kg

DRUGS (2)
  1. ACETAMINOPHEN [Suspect]
     Dates: start: 20061201, end: 20091201
  2. TYLENOL MCNEIL [Suspect]
     Indication: ANTIPYRESIS
     Dosage: X MGS Q 4HRS PO
     Route: 048
     Dates: start: 20080101, end: 20090101

REACTIONS (1)
  - HEPATOTOXICITY [None]
